FAERS Safety Report 17024378 (Version 1)
Quarter: 2019Q4

REPORT INFORMATION
  Report Type: Spontaneous
  Country: US (occurrence: US)
  Receive Date: 20191113
  Receipt Date: 20191113
  Transmission Date: 20200122
  Serious: No
  Sender: FDA-Public Use
  Company Number: US-AMGEN-USASP2019184459

PATIENT
  Age: 71 Year
  Sex: Female

DRUGS (1)
  1. PROLIA [Suspect]
     Active Substance: DENOSUMAB
     Indication: OSTEOPENIA
     Dosage: 60 MILLIGRAM
     Route: 065
     Dates: start: 2016

REACTIONS (3)
  - Off label use [Unknown]
  - Back pain [Unknown]
  - Road traffic accident [Unknown]

NARRATIVE: CASE EVENT DATE: 201711
